FAERS Safety Report 21025036 (Version 2)
Quarter: 2022Q3

REPORT INFORMATION
  Report Type: Spontaneous
  Country: US (occurrence: US)
  Receive Date: 20220629
  Receipt Date: 20220831
  Transmission Date: 20221027
  Serious: No
  Sender: FDA-Public Use
  Company Number: US-JNJFOC-20220656764

PATIENT
  Sex: Female

DRUGS (1)
  1. OPSUMIT [Suspect]
     Active Substance: MACITENTAN
     Indication: Product used for unknown indication
     Route: 048

REACTIONS (5)
  - Peripheral swelling [Unknown]
  - Influenza like illness [Recovered/Resolved]
  - Fatigue [Recovered/Resolved]
  - Weight decreased [Unknown]
  - Peripheral swelling [Recovering/Resolving]
